FAERS Safety Report 9490704 (Version 1)
Quarter: 2013Q3

REPORT INFORMATION
  Report Type: Spontaneous
  Country: FR (occurrence: None)
  Receive Date: 20130826
  Receipt Date: 20130826
  Transmission Date: 20140515
  Serious: Yes (Hospitalization)
  Sender: FDA-Public Use
  Company Number: SYM-2013-08982

PATIENT
  Age: 51 Year
  Sex: Male

DRUGS (14)
  1. FLAGYL [Suspect]
     Indication: PRODUCT USED FOR UNKNOWN INDICATION
     Route: 048
     Dates: start: 20130613, end: 20130619
  2. CIPROFLOXACIN [Suspect]
     Indication: PRODUCT USED FOR UNKNOWN INDICATION
     Dates: start: 20130613, end: 20130619
  3. DOLIPRANE (PARACETAMOL) (PARACETAMOL) [Concomitant]
  4. HYDROSOL POLYVITAMINE B.O.N VITAMINS NOS) (VITAMMINS NOS) [Concomitant]
  5. LACTULOSE (LACTULOSE) (LACTULOSE) [Concomitant]
  6. EUPANTOL (PANTOPRAZOLESODIUM SEQUIHYDRATE) (PANTOPRAZOLE SODIUM SEQUIHYDRATE) [Concomitant]
  7. KARDEGIC 9ACETYSALICYLATE LYSINE) (ACEYTLSALICYLIC ACID) [Concomitant]
  8. PLAVIX (CLOPIDOGREL BISULFATE) (CLOPIDOGREL BISULFATE) [Concomitant]
  9. TAHOR (ATORVASTATIN CALCIUM) (ATORVASTATIN CALCIUM) [Concomitant]
  10. TRAITEC (RAMIPRIL) (RAMIPIL) [Concomitant]
  11. PYRIDOXINE /THIAMINE (VITAMIN B1 AND B6) (THIAMINE, PYRIDOXINE) [Concomitant]
  12. CONTRAMAL (TRAMADOL HYDROCHLORIDE) (TRAMADOL HYDROCHLORIDE) [Concomitant]
  13. PRIMPERAN (METOCLOPRAMIDE HYDRCHLORIDE) (METOCLOPRAMIDE HYDROCHLORIDE) [Concomitant]
  14. SPASFON (SPASFON/00765801/) (PHLOROGLUCINOL, TRMIETHYLPHLOROGLUCINOL) [Concomitant]

REACTIONS (1)
  - Hepatitis cholestatic [None]
